FAERS Safety Report 5884698-7 (Version None)
Quarter: 2008Q3

REPORT INFORMATION
  Report Type: 
  Country: None (occurrence: None)
  Receive Date: 20080916
  Receipt Date: 20080905
  Transmission Date: 20090109
  Serious: Yes (Other)
  Sender: FDA-Public Use
  Company Number: DE-AMGEN-UK306108

PATIENT
  Age: 17 Year
  Sex: Female

DRUGS (2)
  1. NEULASTA [Suspect]
     Indication: CHEMOTHERAPY
     Route: 065
  2. UNSPECIFIED ANTINEOPLASTIC AGENT [Suspect]

REACTIONS (3)
  - LEUKOPENIA [None]
  - PYREXIA [None]
  - THROMBOCYTOPENIA [None]
